FAERS Safety Report 11333598 (Version 1)
Quarter: 2015Q3

REPORT INFORMATION
  Report Type: Spontaneous
  Country: US (occurrence: US)
  Receive Date: 20150803
  Receipt Date: 20150803
  Transmission Date: 20151125
  Serious: No
  Sender: FDA-Public Use
  Company Number: US-ELI_LILLY_AND_COMPANY-US200802004944

PATIENT
  Sex: Female
  Weight: 84.35 kg

DRUGS (2)
  1. SEROQUEL [Concomitant]
     Active Substance: QUETIAPINE FUMARATE
     Dates: start: 2007
  2. ZYPREXA [Suspect]
     Active Substance: OLANZAPINE
     Indication: BIPOLAR DISORDER
     Dosage: 1 D/F, UNK

REACTIONS (3)
  - Blood glucose abnormal [Unknown]
  - Diabetes mellitus [Not Recovered/Not Resolved]
  - Endocrine disorder [Unknown]
